FAERS Safety Report 5440990-1 (Version None)
Quarter: 2007Q3

REPORT INFORMATION
  Report Type: 
  Country: None (occurrence: None)
  Receive Date: 20070731
  Receipt Date: 20070607
  Transmission Date: 20080115
  Serious: No
  Sender: FDA-Public Use
  Company Number: US200706001743

PATIENT
  Sex: Male

DRUGS (3)
  1. BYETTA [Suspect]
     Indication: DIABETES MELLITUS
  2. EXENATIDE [Concomitant]
  3. ANTI-DIABETICS [Concomitant]

REACTIONS (4)
  - ARTHROPOD BITE [None]
  - DRUG INEFFECTIVE [None]
  - PAIN [None]
  - SWELLING [None]
